FAERS Safety Report 4868821-9 (Version None)
Quarter: 2005Q4

REPORT INFORMATION
  Report Type: 
  Country: None (occurrence: None)
  Receive Date: 20051223
  Receipt Date: 20051208
  Transmission Date: 20060501
  Serious: Yes (Hospitalization)
  Sender: FDA-Public Use
  Company Number: 220499

PATIENT
  Age: 78 Year
  Sex: Male

DRUGS (5)
  1. AVASTIN [Suspect]
     Indication: COLORECTAL CANCER METASTATIC
     Dosage: 5 MG/KG, Q2W; INTRAVENOUS; INTRAVENOUS
     Route: 042
     Dates: start: 20050825, end: 20051103
  2. IRINOTECAN HCL [Suspect]
     Indication: COLORECTAL CANCER METASTATIC
     Dosage: 360 MG, Q2W; INTRAVENOUS
     Route: 042
     Dates: start: 20050825, end: 20051201
  3. FLUOROURACIL [Suspect]
     Indication: COLORECTAL CANCER METASTATIC
     Dosage: 800 MG, Q2W; INTRAVENOUS
     Route: 042
     Dates: start: 20050825, end: 20051202
  4. DECADRON [Concomitant]
  5. ZOFRAN [Concomitant]

REACTIONS (4)
  - ASTHENIA [None]
  - BLOOD TEST ABNORMAL [None]
  - DYSPNOEA [None]
  - FEBRILE NEUTROPENIA [None]
